FAERS Safety Report 16047762 (Version 1)
Quarter: 2019Q1

REPORT INFORMATION
  Report Type: Spontaneous
  Country: FR (occurrence: FR)
  Receive Date: 20190307
  Receipt Date: 20190307
  Transmission Date: 20190418
  Serious: Yes (Hospitalization)
  Sender: FDA-Public Use
  Company Number: FR-MYLANLABS-2019M1020677

PATIENT
  Age: 39 Year
  Sex: Female

DRUGS (3)
  1. SUPPONERYL [Concomitant]
     Indication: SEDATION
     Dosage: UNK UNK, DAILY (TAKING 1)
  2. ESTRADIOL. [Suspect]
     Active Substance: ESTRADIOL
     Indication: AMENORRHOEA
     Dosage: UNK (INJECTION)
  3. PROLUTON [Suspect]
     Active Substance: HYDROXYPROGESTERONE CAPROATE
     Indication: AMENORRHOEA
     Dosage: UNK

REACTIONS (1)
  - Acquired porphyria [Recovering/Resolving]
